FAERS Safety Report 16169016 (Version 1)
Quarter: 2019Q2

REPORT INFORMATION
  Report Type: Spontaneous
  Country: US (occurrence: US)
  Receive Date: 20190405
  Receipt Date: 20190405
  Transmission Date: 20190711
  Serious: No
  Sender: FDA-Public Use
  Company Number: None

PATIENT
  Age: 19 Year
  Sex: Female
  Weight: 61.2 kg

DRUGS (2)
  1. FLUOXETINE [Concomitant]
     Active Substance: FLUOXETINE HYDROCHLORIDE
  2. DEPO-PROVERA [Suspect]
     Active Substance: MEDROXYPROGESTERONE ACETATE
     Indication: CONTRACEPTION
     Dates: start: 20180914

REACTIONS (6)
  - Vomiting [None]
  - Seizure [None]
  - Stress [None]
  - Viral infection [None]
  - Dizziness [None]
  - Malaise [None]

NARRATIVE: CASE EVENT DATE: 20190326
